FAERS Safety Report 5525027-8 (Version None)
Quarter: 2007Q4

REPORT INFORMATION
  Report Type: 
  Country: None (occurrence: None)
  Receive Date: 20071126
  Receipt Date: 20071115
  Transmission Date: 20080405
  Serious: Yes (Hospitalization)
  Sender: FDA-Public Use
  Company Number: US-JNJFOC-20071106797

PATIENT
  Sex: Female
  Weight: 74.39 kg

DRUGS (20)
  1. DURAGESIC-100 [Suspect]
     Route: 062
  2. DURAGESIC-100 [Suspect]
     Indication: PAIN
     Route: 062
  3. FENTANYL TRANSDERMAL SYSTEM [Suspect]
     Indication: PAIN
     Route: 062
  4. NITROGLYCERIN [Suspect]
     Indication: CHEST PAIN
     Route: 062
  5. VICODIN [Concomitant]
     Indication: PAIN
     Dosage: 7.5/750MG
     Route: 048
  6. COUMADIN [Concomitant]
     Route: 048
  7. COUMADIN [Concomitant]
     Indication: CARDIAC DISORDER
     Route: 048
  8. SPIRONOLACTONE [Concomitant]
     Indication: RESPIRATORY DISORDER
     Route: 048
  9. LASIX [Concomitant]
     Indication: FLUID RETENTION
     Route: 048
  10. ZOCOR [Concomitant]
     Indication: BLOOD CHOLESTEROL
     Route: 048
  11. NEXIUM [Concomitant]
     Indication: GASTROOESOPHAGEAL REFLUX DISEASE
     Route: 048
  12. ACTONEL [Concomitant]
     Indication: OSTEOPOROSIS
     Route: 048
  13. DIGOXIN [Concomitant]
     Indication: CARDIAC DISORDER
     Route: 048
  14. CLONAZEPAM [Concomitant]
     Indication: NERVOUSNESS
     Route: 048
  15. AMIODARONE HCL [Concomitant]
     Indication: CARDIAC DISORDER
     Route: 048
  16. COREG [Concomitant]
     Indication: CARDIAC DISORDER
     Route: 048
  17. DIOVAN [Concomitant]
     Indication: CARDIAC DISORDER
     Route: 048
  18. DIOVAN [Concomitant]
     Indication: FLUID RETENTION
     Route: 048
  19. POTASSIUM CHLORIDE [Concomitant]
     Route: 048
  20. OS-CAL [Concomitant]
     Indication: BLOOD CALCIUM
     Route: 048

REACTIONS (7)
  - CARDIAC DISORDER [None]
  - CARDIAC FAILURE [None]
  - CHEST PAIN [None]
  - HYPOTENSION [None]
  - INCORRECT DRUG ADMINISTRATION DURATION [None]
  - PNEUMONIA [None]
  - WRONG TECHNIQUE IN DRUG USAGE PROCESS [None]
